FAERS Safety Report 7267051-3 (Version None)
Quarter: 2011Q1

REPORT INFORMATION
  Report Type: 
  Country: None (occurrence: None)
  Receive Date: 20110201
  Receipt Date: 20110118
  Transmission Date: 20110831
  Serious: Yes (Hospitalization, Other)
  Sender: FDA-Public Use
  Company Number: PHHY2011US02107

PATIENT
  Sex: Male
  Weight: 60 kg

DRUGS (2)
  1. MYFORTIC [Suspect]
     Indication: INTERSTITIAL LUNG DISEASE
     Dosage: 360 MG, BID
     Route: 048
  2. MYFORTIC [Suspect]
     Indication: POLYMYOSITIS
     Dosage: 1080 MG, BID
     Route: 048
     Dates: start: 20100801

REACTIONS (19)
  - HYPOTENSION [None]
  - MENTAL STATUS CHANGES [None]
  - CONFUSIONAL STATE [None]
  - PROSTATE CANCER [None]
  - HYPOPHAGIA [None]
  - BLOOD ALKALINE PHOSPHATASE INCREASED [None]
  - METASTASES TO BONE [None]
  - DISORIENTATION [None]
  - MUSCULAR WEAKNESS [None]
  - DYSURIA [None]
  - DYSARTHRIA [None]
  - WEIGHT DECREASED [None]
  - IRON DEFICIENCY ANAEMIA [None]
  - PROSTATIC SPECIFIC ANTIGEN INCREASED [None]
  - STRABISMUS [None]
  - HALLUCINATION [None]
  - SPEECH DISORDER [None]
  - NEPHROLITHIASIS [None]
  - DECUBITUS ULCER [None]
